FAERS Safety Report 5392463-2 (Version None)
Quarter: 2007Q3

REPORT INFORMATION
  Report Type: 
  Country: None (occurrence: None)
  Receive Date: 20070720
  Receipt Date: 20070712
  Transmission Date: 20080115
  Serious: No
  Sender: FDA-Public Use
  Company Number: US-ASTRAZENECA-2007UW12829

PATIENT
  Age: 46 Year
  Sex: Female
  Weight: 114.5 kg

DRUGS (11)
  1. ZOLADEX [Suspect]
     Indication: BREAST CANCER
     Route: 058
     Dates: start: 20070426, end: 20070426
  2. SPIRONOLACTONE [Concomitant]
  3. LASIX [Concomitant]
  4. POTASSIUM CHLORIDE [Concomitant]
  5. ALBUMIN (HUMAN) [Concomitant]
     Route: 042
  6. ARIMIDEX [Concomitant]
     Route: 048
  7. VITAMIN B-12 [Concomitant]
  8. TRIAMCINOLONE [Concomitant]
  9. CAMPHOR/METHOL [Concomitant]
  10. LEXAPRO [Concomitant]
  11. TRAZODONE HCL [Concomitant]

REACTIONS (2)
  - DRUG ADMINISTRATION ERROR [None]
  - IMPLANT SITE EFFUSION [None]
